FAERS Safety Report 10128534 (Version 1)
Quarter: 2014Q2

REPORT INFORMATION
  Report Type: Spontaneous
  Country: ES (occurrence: ES)
  Receive Date: 20140428
  Receipt Date: 20140428
  Transmission Date: 20141212
  Serious: Yes (Other)
  Sender: FDA-Public Use
  Company Number: ES-ACCORD-023345

PATIENT
  Age: 30 Year
  Sex: Male

DRUGS (4)
  1. MYCOPHENOLIC ACID [Suspect]
     Indication: LUNG TRANSPLANT
  2. TACROLIMUS [Suspect]
     Indication: LUNG TRANSPLANT
  3. PREDNISONE [Suspect]
     Indication: LUNG TRANSPLANT
  4. VORICONAZOLE [Suspect]
     Indication: BRONCHOPULMONARY ASPERGILLOSIS
     Dates: start: 2007

REACTIONS (1)
  - Squamous cell carcinoma [Recovered/Resolved]
